FAERS Safety Report 20643542 (Version 1)
Quarter: 2022Q1

REPORT INFORMATION
  Report Type: Spontaneous
  Country: PL (occurrence: PL)
  Receive Date: 20220328
  Receipt Date: 20220328
  Transmission Date: 20220423
  Serious: Yes (Other)
  Sender: FDA-Public Use
  Company Number: PL-PFIZER INC-202200210818

PATIENT
  Age: 54 Year
  Sex: Female

DRUGS (1)
  1. VORICONAZOLE [Suspect]
     Active Substance: VORICONAZOLE
     Indication: Bronchopulmonary aspergillosis
     Dosage: 400 MILLIGRAM, QD (200 MG, 2X/DAY)
     Route: 048
     Dates: start: 202101

REACTIONS (6)
  - Hepatotoxicity [Recovering/Resolving]
  - Visual impairment [Recovering/Resolving]
  - Drug intolerance [Recovering/Resolving]
  - Chest pain [Recovering/Resolving]
  - Abdominal pain upper [Recovering/Resolving]
  - Weight decreased [Recovering/Resolving]

NARRATIVE: CASE EVENT DATE: 20210101
